FAERS Safety Report 5294137-5 (Version None)
Quarter: 2007Q1

REPORT INFORMATION
  Report Type: 
  Country: None (occurrence: None)
  Receive Date: 20070116
  Receipt Date: 20061113
  Transmission Date: 20070707
  Serious: Yes (Other)
  Sender: FDA-Public Use
  Company Number: HQWYE582115NOV06

PATIENT
  Age: 68 Year
  Sex: Female

DRUGS (11)
  1. PREMPRO [Suspect]
     Indication: HORMONE REPLACEMENT THERAPY
     Dosage: SEE IMAGE
     Route: 048
     Dates: start: 19910101, end: 20060921
  2. PREMPRO [Suspect]
     Indication: HORMONE REPLACEMENT THERAPY
     Dosage: SEE IMAGE
     Route: 048
     Dates: start: 20060921
  3. PREMPRO [Suspect]
     Indication: HORMONE REPLACEMENT THERAPY
     Dosage: SEE IMAGE
     Route: 048
     Dates: start: 20061113
  4. SUPER B (AMNIO ACIDS NOS/MINERAL NOS/VITAMINS NOS) [Concomitant]
  5. FOLIC ACID [Concomitant]
  6. CALCIUM (CALCIUM) [Concomitant]
  7. MULTIVITAMINS W/MINERALS (MINERALS NOS/VITAMINS NOS) [Concomitant]
  8. VITAMIN D [Concomitant]
  9. SELENIUM (SELENIUM) [Concomitant]
  10. ASCORBIC ACID [Concomitant]
  11. VITAMIN E [Concomitant]

REACTIONS (2)
  - BREAST CANCER [None]
  - DEPRESSION [None]
